FAERS Safety Report 9850293 (Version 2)
Quarter: 2014Q1

REPORT INFORMATION
  Report Type: Report from Study
  Country: JP (occurrence: JP)
  Receive Date: 20140128
  Receipt Date: 20140310
  Transmission Date: 20141002
  Serious: Yes (Other)
  Sender: FDA-Public Use
  Company Number: JP-GLAXOSMITHKLINE-B0963653A

PATIENT
  Age: 67 Year
  Sex: Female
  Weight: 52 kg

DRUGS (7)
  1. REVOLADE [Suspect]
     Indication: IMMUNE THROMBOCYTOPENIC PURPURA
     Route: 048
     Dates: start: 20130826, end: 20131118
  2. PREDNISOLONE [Concomitant]
     Indication: IMMUNE THROMBOCYTOPENIC PURPURA
     Route: 048
  3. CEPHARANTHINE [Concomitant]
     Indication: IMMUNE THROMBOCYTOPENIC PURPURA
     Route: 048
     Dates: end: 20131007
  4. ADONA (AC-17) [Concomitant]
     Indication: HAEMORRHAGE PROPHYLAXIS
     Route: 048
  5. SELBEX [Concomitant]
     Indication: HAEMORRHAGE PROPHYLAXIS
     Route: 048
  6. TRANSAMIN [Concomitant]
     Indication: GASTRITIS PROPHYLAXIS
     Route: 048
  7. RECALBON [Concomitant]
     Indication: OSTEOPOROSIS PROPHYLAXIS
     Route: 048

REACTIONS (4)
  - Schizophrenia [Recovering/Resolving]
  - Hallucination, auditory [Recovering/Resolving]
  - Dizziness [Recovered/Resolved]
  - Hand fracture [Recovered/Resolved]
